FAERS Safety Report 5696798-5 (Version None)
Quarter: 2008Q2

REPORT INFORMATION
  Report Type: 
  Country: None (occurrence: None)
  Receive Date: 20080408
  Receipt Date: 20070307
  Transmission Date: 20081010
  Serious: Yes (Hospitalization)
  Sender: FDA-Public Use
  Company Number: US-BAYER-US-2006-034886

PATIENT
  Age: 21 Year
  Sex: Female
  Weight: 66 kg

DRUGS (2)
  1. YASMIN [Suspect]
     Indication: ORAL CONTRACEPTION
     Route: 048
     Dates: start: 20060501
  2. ALBUTEROL [Concomitant]
     Route: 055

REACTIONS (1)
  - ERYTHEMA NODOSUM [None]
